FAERS Safety Report 8962821 (Version 1)
Quarter: 2012Q4

REPORT INFORMATION
  Report Type: 
  Country: US (occurrence: US)
  Receive Date: 20121213
  Receipt Date: 20121213
  Transmission Date: 20130627
  Serious: Yes (Other)
  Sender: FDA-Public Use
  Company Number: US-EISAI INC-E7273-00354-SPO-US

PATIENT
  Age: 72 Year
  Sex: Male

DRUGS (2)
  1. TARGRETIN [Suspect]
     Indication: MYCOSIS FUNGOIDES
     Dosage: UNKNOWN
     Route: 048
  2. INTERFERON ALFA [Concomitant]
     Indication: MYCOSIS FUNGOIDES

REACTIONS (2)
  - Pericarditis [Unknown]
  - Pneumonia [Unknown]
